FAERS Safety Report 8492859-6 (Version None)
Quarter: 2012Q3

REPORT INFORMATION
  Report Type: 
  Country: None (occurrence: None)
  Receive Date: 20120706
  Receipt Date: 20120626
  Transmission Date: 20120928
  Serious: Yes (Hospitalization)
  Sender: FDA-Public Use
  Company Number: GB-JNJFOC-20120700752

PATIENT
  Age: 2 Year

DRUGS (2)
  1. ACETAMINOPHEN [Suspect]
     Route: 048
  2. ACETAMINOPHEN [Suspect]
     Indication: ACCIDENTAL EXPOSURE
     Dosage: WHOLE BOTTLE
     Route: 048

REACTIONS (2)
  - ACCIDENTAL OVERDOSE [None]
  - PRODUCT PACKAGING ISSUE [None]
